FAERS Safety Report 13419738 (Version 1)
Quarter: 2017Q2

REPORT INFORMATION
  Report Type: Spontaneous
  Country: US (occurrence: US)
  Receive Date: 20170407
  Receipt Date: 20170407
  Transmission Date: 20170830
  Serious: No
  Sender: FDA-Public Use
  Company Number: US-PFIZER INC-2017149727

PATIENT
  Age: 63 Year
  Sex: Female

DRUGS (3)
  1. FLUOCINONIDE. [Suspect]
     Active Substance: FLUOCINONIDE
     Dosage: UNK
  2. DOXYCYCLINE HYCLATE. [Suspect]
     Active Substance: DOXYCYCLINE HYCLATE
     Dosage: UNK
  3. LIDEX [Suspect]
     Active Substance: FLUOCINONIDE
     Dosage: UNK

REACTIONS (1)
  - Treatment failure [Unknown]
